FAERS Safety Report 7338430-0 (Version None)
Quarter: 2011Q1

REPORT INFORMATION
  Report Type: 
  Country: None (occurrence: None)
  Receive Date: 20110210
  Receipt Date: 20101202
  Transmission Date: 20110831
  Serious: No
  Sender: FDA-Public Use
  Company Number: 1000017579

PATIENT
  Age: 65 Year
  Sex: Female

DRUGS (4)
  1. SAVELLA [Suspect]
     Indication: FIBROMYALGIA
     Dosage: 12.5 MG (12.5 MG, 1 IN 1 D), ORAL, 25 MG (2 IN 1 D), 50 MG (25 MG, 2 IN 1 D), ORAL
     Route: 048
     Dates: start: 20101112, end: 20101112
  2. SAVELLA [Suspect]
     Indication: FIBROMYALGIA
     Dosage: 12.5 MG (12.5 MG, 1 IN 1 D), ORAL, 25 MG (2 IN 1 D), 50 MG (25 MG, 2 IN 1 D), ORAL
     Route: 048
     Dates: start: 20101115, end: 20101118
  3. SAVELLA [Suspect]
     Indication: FIBROMYALGIA
     Dosage: 12.5 MG (12.5 MG, 1 IN 1 D), ORAL, 25 MG (2 IN 1 D), 50 MG (25 MG, 2 IN 1 D), ORAL
     Route: 048
     Dates: start: 20101113, end: 20101114
  4. SAVELLA [Suspect]
     Dosage: 12.5 MG (12.5 MG, 1 IN 1 D), ORAL
     Route: 048
     Dates: start: 20101119, end: 20101121

REACTIONS (1)
  - RASH [None]
